FAERS Safety Report 19090363 (Version 4)
Quarter: 2021Q2

REPORT INFORMATION
  Report Type: Spontaneous
  Country: US (occurrence: US)
  Receive Date: 20210405
  Receipt Date: 20210620
  Transmission Date: 20210717
  Serious: No
  Sender: FDA-Public Use
  Company Number: US-ORGANON-O2103USA002489

PATIENT
  Age: 20 Year
  Sex: Female
  Weight: 139 kg

DRUGS (1)
  1. NEXPLANON [Suspect]
     Active Substance: ETONOGESTREL
     Dosage: 1 DOSAGE FORM (IMPLANT) 68 MILLIGRAMS, LEFT UPPER ARM
     Route: 059
     Dates: start: 20180212, end: 20210317

REACTIONS (7)
  - Implant site abscess [Unknown]
  - Complication of device removal [Recovered/Resolved]
  - Implant site cellulitis [Unknown]
  - Incorrect product administration duration [Unknown]
  - Implant site pruritus [Unknown]
  - Device breakage [Recovered/Resolved]
  - Implant site infection [Unknown]

NARRATIVE: CASE EVENT DATE: 202102
